FAERS Safety Report 9115741 (Version 1)
Quarter: 2013Q1

REPORT INFORMATION
  Report Type: Spontaneous
  Country: US (occurrence: US)
  Receive Date: 20130225
  Receipt Date: 20130225
  Transmission Date: 20140127
  Serious: No
  Sender: FDA-Public Use
  Company Number: US-ENDO PHARMACEUTICALS INC.-FORT20120047

PATIENT
  Sex: Female

DRUGS (1)
  1. FORTESTA [Suspect]
     Indication: ACCIDENTAL EXPOSURE TO PRODUCT
     Dosage: N/A

REACTIONS (3)
  - Exposure during pregnancy [Unknown]
  - Amenorrhoea [Unknown]
  - Accidental exposure to product [Unknown]
